FAERS Safety Report 9723134 (Version 1)
Quarter: 2013Q4

REPORT INFORMATION
  Report Type: Spontaneous
  Country: JP (occurrence: JP)
  Receive Date: 20131202
  Receipt Date: 20131202
  Transmission Date: 20140711
  Serious: Yes (Death, Other)
  Sender: FDA-Public Use
  Company Number: JP-009507513-1312JPN000295

PATIENT
  Sex: 0

DRUGS (4)
  1. ESLAX [Suspect]
     Indication: NEUROMUSCULAR BLOCKADE
     Dosage: DOSAGE IS UNCERTAIN DURING A DAY.
     Route: 064
  2. PROPOFOL [Concomitant]
     Indication: INDUCTION OF ANAESTHESIA
     Dosage: DOSAGE IS UNCERTAIN DURING A DAY
     Route: 064
  3. SEVOFLURANE [Concomitant]
     Indication: MAINTENANCE OF ANAESTHESIA
     Dosage: 1 MAC
     Route: 064
  4. REMIFENTANIL HYDROCHLORIDE [Concomitant]
     Indication: MAINTENANCE OF ANAESTHESIA
     Dosage: 0.1 MICROGRAM PER KILOGRAM, 1 MINUTE INTERVAL
     Route: 064

REACTIONS (2)
  - Stillbirth [Fatal]
  - Foetal exposure during pregnancy [Unknown]
